FAERS Safety Report 9337287 (Version 2)
Quarter: 2013Q4

REPORT INFORMATION
  Report Type: Report from Study
  Country: US (occurrence: US)
  Receive Date: 20130607
  Receipt Date: 20131122
  Transmission Date: 20140711
  Serious: No
  Sender: FDA-Public Use
  Company Number: US-UCBSA-087878

PATIENT
  Age: 43 Year
  Sex: Female
  Weight: 107.95 kg

DRUGS (12)
  1. CIMZIA [Suspect]
     Indication: CROHN^S DISEASE
     Route: 058
     Dates: start: 20110128
  2. LIALDA [Concomitant]
     Indication: CROHN^S DISEASE
     Dates: start: 20100909
  3. VITAMIN D [Concomitant]
     Indication: CROHN^S DISEASE
  4. ESTER C [Concomitant]
     Indication: CROHN^S DISEASE
  5. LIBRIUM [Concomitant]
     Dosage: 5MG DAILY PRN
  6. ESTRADIOL [Concomitant]
  7. ACIPHEX [Concomitant]
  8. PERCOCET [Concomitant]
     Indication: PAIN
     Dosage: 10-325MG PRN PAIN
  9. TOPAMAX [Concomitant]
     Dosage: 50MG IN THE MORNING,100MG IN THE EVENING
  10. SYNTHROID [Concomitant]
  11. CALTRATE [Concomitant]
  12. MULTIVITAMIN [Concomitant]
     Dosage: UNSPECIFIED DOSE DAILY

REACTIONS (1)
  - Vulvovaginal mycotic infection [Recovering/Resolving]
